FAERS Safety Report 19377091 (Version 2)
Quarter: 2021Q2

REPORT INFORMATION
  Report Type: Spontaneous
  Country: US (occurrence: US)
  Receive Date: 20210604
  Receipt Date: 20210616
  Transmission Date: 20210717
  Serious: Yes (Hospitalization)
  Sender: FDA-Public Use
  Company Number: US-TEVA-2021-US-1919164

PATIENT
  Age: 72 Year
  Sex: Female
  Weight: 103 kg

DRUGS (2)
  1. ALL?TRANS RETINOIC ACID [Concomitant]
     Active Substance: TRETINOIN
     Indication: ACUTE PROMYELOCYTIC LEUKAEMIA
     Dosage: 90 MG/M2 DAILY;
     Route: 048
  2. ARSENIC TRIOXIDE. [Suspect]
     Active Substance: ARSENIC TRIOXIDE
     Indication: ACUTE PROMYELOCYTIC LEUKAEMIA
     Dosage: STARTING DAY 5 UPON CONFIRMATION OF DIAGNOSTIC STUDIES USING HER ACTUAL BODY WEIGHT (ABW) OF 103 KG.
     Route: 042

REACTIONS (3)
  - Toxicity to various agents [Unknown]
  - Pancreatitis acute [Recovered/Resolved]
  - Diarrhoea [Unknown]
